FAERS Safety Report 23195223 (Version 1)
Quarter: 2023Q4

REPORT INFORMATION
  Report Type: Spontaneous
  Country: CA (occurrence: CA)
  Receive Date: 20231117
  Receipt Date: 20231117
  Transmission Date: 20240109
  Serious: No
  Sender: FDA-Public Use
  Company Number: CA-ALKEM LABORATORIES LIMITED-CA-ALKEM-2022-13800

PATIENT
  Age: 10 Year
  Sex: Female

DRUGS (1)
  1. OLANZAPINE [Suspect]
     Active Substance: OLANZAPINE
     Indication: Agitation
     Dosage: UNK UNK, QD (2.5-7.5 MG PER DAY (MAX TOTAL DAILY DOSE 10MG)
     Route: 065

REACTIONS (2)
  - Increased appetite [Unknown]
  - Weight increased [Unknown]
